FAERS Safety Report 12929404 (Version 1)
Quarter: 2016Q4

REPORT INFORMATION
  Report Type: Report from Study
  Country: US (occurrence: US)
  Receive Date: 20161110
  Receipt Date: 20161110
  Transmission Date: 20170207
  Serious: Yes (Hospitalization, Other)
  Sender: FDA-Public Use
  Company Number: US-BRISTOL-MYERS SQUIBB COMPANY-BMS-2016-087460

PATIENT
  Sex: Male

DRUGS (2)
  1. NIVOLUMAB [Suspect]
     Active Substance: NIVOLUMAB
     Indication: MALIGNANT MELANOMA
     Route: 042
  2. YERVOY [Suspect]
     Active Substance: IPILIMUMAB
     Indication: MALIGNANT MELANOMA
     Route: 042

REACTIONS (22)
  - Basal cell carcinoma [Unknown]
  - Cold sweat [Unknown]
  - Pruritus [Unknown]
  - Decreased appetite [Recovering/Resolving]
  - Weight increased [Unknown]
  - Energy increased [Unknown]
  - Skin neoplasm excision [Unknown]
  - Hypoaesthesia [Unknown]
  - Alopecia [Unknown]
  - Pyrexia [Recovered/Resolved]
  - Blood glucose increased [Unknown]
  - Skin irritation [Unknown]
  - Vision blurred [Unknown]
  - Paraesthesia [Unknown]
  - Rash [Recovered/Resolved]
  - Dizziness [Unknown]
  - Pain [Unknown]
  - Fatigue [Recovered/Resolved]
  - Scab [Unknown]
  - Constipation [Recovered/Resolved]
  - Somnolence [Unknown]
  - Asthenia [Recovering/Resolving]
